FAERS Safety Report 25840847 (Version 1)
Quarter: 2025Q3

REPORT INFORMATION
  Report Type: Spontaneous
  Country: US (occurrence: US)
  Receive Date: 20250924
  Receipt Date: 20250924
  Transmission Date: 20251021
  Serious: Yes (Hospitalization)
  Sender: MYLAN
  Company Number: US-MYLANLABS-2025M1080672

PATIENT
  Age: 3 Year
  Sex: Female

DRUGS (8)
  1. DIVALPROEX SODIUM [Suspect]
     Active Substance: DIVALPROEX SODIUM
     Indication: Hemiclonic seizure
  2. CARBAMAZEPINE [Suspect]
     Active Substance: CARBAMAZEPINE
     Indication: Hemiclonic seizure
  3. LEVETIRACETAM [Suspect]
     Active Substance: LEVETIRACETAM
     Indication: Hemiclonic seizure
  4. PHENYTOIN [Suspect]
     Active Substance: PHENYTOIN
     Indication: Hemiclonic seizure
  5. PHENOBARBITAL [Suspect]
     Active Substance: PHENOBARBITAL
     Indication: Hemiclonic seizure
  6. CLOBAZAM [Suspect]
     Active Substance: CLOBAZAM
     Indication: Hemiclonic seizure
  7. TOPIRAMATE [Suspect]
     Active Substance: TOPIRAMATE
     Indication: Hemiclonic seizure
  8. OXCARBAZEPINE [Concomitant]
     Active Substance: OXCARBAZEPINE
     Indication: Hemiclonic seizure

REACTIONS (1)
  - Drug ineffective [Unknown]
